FAERS Safety Report 8610377-9 (Version None)
Quarter: 2012Q3

REPORT INFORMATION
  Report Type: 
  Country: None (occurrence: None)
  Receive Date: 20120822
  Receipt Date: 20120820
  Transmission Date: 20120928
  Serious: Yes (Death)
  Sender: FDA-Public Use
  Company Number: PHFR2012GB004573

PATIENT
  Sex: Male

DRUGS (4)
  1. SIMVASTATIN [Concomitant]
  2. CLOZARIL [Suspect]
     Indication: SCHIZOPHRENIA
     Dates: start: 20110309
  3. NITROGLYCERIN [Concomitant]
  4. ASPIRIN [Concomitant]

REACTIONS (4)
  - CARDIAC ARREST [None]
  - PAIN [None]
  - WHITE BLOOD CELL COUNT INCREASED [None]
  - NEUTROPHIL COUNT INCREASED [None]
